FAERS Safety Report 18095111 (Version 1)
Quarter: 2020Q3

REPORT INFORMATION
  Report Type: Report from Study
  Country: GB (occurrence: GB)
  Receive Date: 20200730
  Receipt Date: 20200730
  Transmission Date: 20201103
  Serious: Yes (Hospitalization)
  Sender: FDA-Public Use
  Company Number: GB-JNJFOC-20200734339

PATIENT
  Age: 56 Year
  Sex: Female
  Weight: 74.4 kg

DRUGS (59)
  1. MEROPENEM. [Concomitant]
     Active Substance: MEROPENEM
     Dates: start: 20180717, end: 20180723
  2. LAXIDO [Concomitant]
     Active Substance: POLYETHYLENE GLYCOL 3350\POTASSIUM CHLORIDE\SODIUM BICARBONATE\SODIUM CHLORIDE
     Dates: start: 20171013, end: 20171020
  3. TEICOPLANIN [Concomitant]
     Active Substance: TEICOPLANIN
     Dates: start: 20180221, end: 20180321
  4. LEVOFLOXACIN. [Concomitant]
     Active Substance: LEVOFLOXACIN
     Dates: start: 20180221, end: 20180321
  5. DIAZEPAM. [Concomitant]
     Active Substance: DIAZEPAM
     Dates: start: 20180601, end: 20180601
  6. DILTIAZEM. [Concomitant]
     Active Substance: DILTIAZEM
     Dates: start: 20180606, end: 20181123
  7. GABAPENTIN. [Concomitant]
     Active Substance: GABAPENTIN
     Dates: start: 20180724
  8. ADCAL                              /00056901/ [Concomitant]
     Active Substance: CARBAZOCHROME
     Dates: start: 20190211
  9. PREDNISOLONE. [Concomitant]
     Active Substance: PREDNISOLONE
     Dates: start: 20090101
  10. DENOSUMAB [Concomitant]
     Active Substance: DENOSUMAB
     Dates: start: 20160511
  11. ATORVASTATIN [Concomitant]
     Active Substance: ATORVASTATIN
     Dates: start: 20170628
  12. DEPO MEDRONE+LIDOCAINE [Concomitant]
     Dates: start: 20180509, end: 20180509
  13. TICAGRELOR. [Concomitant]
     Active Substance: TICAGRELOR
     Dates: start: 20180601, end: 20180921
  14. BENDROFLUMETHIAZIDE [Concomitant]
     Active Substance: BENDROFLUMETHIAZIDE
     Dates: start: 20180724, end: 20181123
  15. DOMPERIDONE [Concomitant]
     Active Substance: DOMPERIDONE
     Dates: start: 20190122
  16. COLCHICINE. [Concomitant]
     Active Substance: COLCHICINE
     Dates: start: 20190912, end: 20190921
  17. LORAZEPAM. [Concomitant]
     Active Substance: LORAZEPAM
     Dates: start: 20190919
  18. METOPROLOL. [Concomitant]
     Active Substance: METOPROLOL
  19. TRAMADOL. [Concomitant]
     Active Substance: TRAMADOL
     Dates: start: 20070101, end: 20170725
  20. PREGABALIN. [Concomitant]
     Active Substance: PREGABALIN
     Dates: start: 20151203
  21. FEXOFENADINE [Concomitant]
     Active Substance: FEXOFENADINE HYDROCHLORIDE
     Dates: start: 20170628
  22. AMITRIPTYLINE [Concomitant]
     Active Substance: AMITRIPTYLINE
     Dates: start: 20171128
  23. APREMILAST [Concomitant]
     Active Substance: APREMILAST
     Dates: start: 20180926, end: 20191012
  24. METOCLOPRAMIDE. [Concomitant]
     Active Substance: METOCLOPRAMIDE
     Dates: start: 20190922
  25. PARACETAMOL [Concomitant]
     Active Substance: ACETAMINOPHEN
     Dates: start: 20170628
  26. FONDAPARINUX [Concomitant]
     Active Substance: FONDAPARINUX
     Dates: start: 20180601, end: 20180601
  27. RAMIPRIL. [Concomitant]
     Active Substance: RAMIPRIL
     Dates: start: 20181023, end: 20190525
  28. GLYCERYL TRINITRATE [Concomitant]
     Active Substance: NITROGLYCERIN
     Dates: start: 20190920
  29. TEICOPLANIN [Concomitant]
     Active Substance: TEICOPLANIN
     Dates: start: 20190922, end: 20190926
  30. TEICOPLANIN [Concomitant]
     Active Substance: TEICOPLANIN
     Dates: start: 20190929, end: 20191003
  31. PENICILLINE                        /00000901/ [Concomitant]
     Active Substance: PENICILLIN G
     Dates: start: 20190929, end: 20191003
  32. TELMISARTAN. [Concomitant]
     Active Substance: TELMISARTAN
     Dates: start: 20030918
  33. GLICLAZIDE [Concomitant]
     Active Substance: GLICLAZIDE
  34. ORAMORPH [Concomitant]
     Active Substance: MORPHINE SULFATE
     Dates: start: 20150901
  35. MINOXIDIL. [Concomitant]
     Active Substance: MINOXIDIL
     Dates: start: 20170309
  36. ZOLEDRONIC ACID [Concomitant]
     Active Substance: ZOLEDRONIC ACID
     Dates: start: 20170327
  37. SODIUM HYALURONATE [Concomitant]
     Active Substance: HYALURONATE SODIUM
  38. INSULIN [Concomitant]
     Active Substance: INSULIN NOS
  39. STELARA [Suspect]
     Active Substance: USTEKINUMAB
  40. OMEPRAZOLE. [Concomitant]
     Active Substance: OMEPRAZOLE
     Dates: start: 20020801
  41. SIMVASTATIN. [Concomitant]
     Active Substance: SIMVASTATIN
     Dates: start: 20050101
  42. VITAMIN D                          /00107901/ [Concomitant]
     Active Substance: ERGOCALCIFEROL
     Dates: start: 20160524
  43. OXYCODONE [Concomitant]
     Active Substance: OXYCODONE
     Dates: start: 20170725
  44. MACROGOL [Concomitant]
     Active Substance: POLYETHYLENE GLYCOLS
     Dates: start: 20180116
  45. BISOPROLOL [Concomitant]
     Active Substance: BISOPROLOL
     Dates: start: 20180417
  46. CEFTRIAXONE. [Concomitant]
     Active Substance: CEFTRIAXONE
     Dates: start: 20180724, end: 20180806
  47. STELARA [Suspect]
     Active Substance: USTEKINUMAB
     Indication: PSORIASIS
     Route: 058
     Dates: start: 20151119, end: 20180425
  48. DULOXETINE. [Concomitant]
     Active Substance: DULOXETINE
     Dates: start: 20181023, end: 20190122
  49. DOCUSATE SODIUM. [Concomitant]
     Active Substance: DOCUSATE SODIUM
     Dates: start: 20180417
  50. DEPO MEDRONE+LIDOCAINE [Concomitant]
     Dates: start: 20190122, end: 20190122
  51. IRON [Concomitant]
     Active Substance: IRON
     Dates: start: 20190710, end: 20190710
  52. IVABRADINE [Concomitant]
     Active Substance: IVABRADINE
     Dates: start: 20190919, end: 20190919
  53. SIMVASTATIN. [Concomitant]
     Active Substance: SIMVASTATIN
     Dates: start: 20030512
  54. TELMISARTAN. [Concomitant]
     Active Substance: TELMISARTAN
     Dates: start: 20150101
  55. LANSOPRAZOLE. [Concomitant]
     Active Substance: LANSOPRAZOLE
     Dates: start: 20120701
  56. HUMULIN NOS [Concomitant]
     Active Substance: INSULIN HUMAN
     Dates: start: 20170209
  57. TRIAMCINOLONE [Concomitant]
     Active Substance: TRIAMCINOLONE
     Dates: start: 20171025, end: 20171025
  58. FUROSEMIDE. [Concomitant]
     Active Substance: FUROSEMIDE
     Dates: start: 20190401
  59. FOLIC ACID. [Concomitant]
     Active Substance: FOLIC ACID
     Dates: start: 20180417

REACTIONS (3)
  - Chronic kidney disease [Recovered/Resolved]
  - Mitral valve calcification [Recovered/Resolved]
  - Sepsis [Recovered/Resolved]

NARRATIVE: CASE EVENT DATE: 20180724
